FAERS Safety Report 24594085 (Version 1)
Quarter: 2024Q4

REPORT INFORMATION
  Report Type: Spontaneous
  Country: US (occurrence: US)
  Receive Date: 20241108
  Receipt Date: 20241108
  Transmission Date: 20250115
  Serious: Yes (Hospitalization, Other)
  Sender: RANBAXY
  Company Number: US-SUN PHARMACEUTICAL INDUSTRIES LTD-2024R1-477952

PATIENT
  Age: 29 Year
  Sex: Female

DRUGS (2)
  1. PREDNISONE [Suspect]
     Active Substance: PREDNISONE
     Indication: Pregnancy
     Dosage: UNK
     Route: 065
  2. ADALIMUMAB [Suspect]
     Active Substance: ADALIMUMAB
     Indication: Pregnancy
     Dosage: UNK
     Route: 065

REACTIONS (6)
  - Exposure during pregnancy [Unknown]
  - Premature delivery [Unknown]
  - Pre-eclampsia [Unknown]
  - Pulmonary oedema [Recovered/Resolved]
  - Hypertension [Unknown]
  - Proteinuria [Recovered/Resolved]
